FAERS Safety Report 10671817 (Version 1)
Quarter: 2014Q4

REPORT INFORMATION
  Report Type: Spontaneous
  Country: US (occurrence: US)
  Receive Date: 20141223
  Receipt Date: 20141223
  Transmission Date: 20150529
  Serious: Yes (Other)
  Sender: FDA-Public Use
  Company Number: US-PFIZER INC-2014352526

PATIENT
  Sex: Female

DRUGS (1)
  1. GENOTROPIN [Suspect]
     Active Substance: SOMATROPIN
     Dosage: UNK
     Dates: start: 1994

REACTIONS (4)
  - Alopecia [Unknown]
  - Muscle disorder [Unknown]
  - Brain neoplasm [Unknown]
  - Hypothalamo-pituitary disorder [Unknown]

NARRATIVE: CASE EVENT DATE: 1994
